FAERS Safety Report 9464436 (Version 2)
Quarter: 2013Q4

REPORT INFORMATION
  Report Type: Spontaneous
  Country: US (occurrence: US)
  Receive Date: 20130819
  Receipt Date: 20131023
  Transmission Date: 20140711
  Serious: No
  Sender: FDA-Public Use
  Company Number: US-PFIZER INC-2013239080

PATIENT
  Age: 54 Year
  Sex: Female
  Weight: 63.49 kg

DRUGS (3)
  1. EFFEXOR XR [Suspect]
     Indication: PANIC DISORDER
     Dosage: 75 MG, 1X/DAY
     Route: 048
  2. MAGNESIUM [Concomitant]
     Dosage: UNK, WEEKLY
  3. LORAZEPAM [Concomitant]
     Dosage: 0.5 MG, 1X/DAY

REACTIONS (5)
  - Drug dose omission [Unknown]
  - Anxiety [Unknown]
  - Insomnia [Unknown]
  - Depressed mood [Unknown]
  - Drug effect incomplete [Unknown]
